FAERS Safety Report 12536892 (Version 1)
Quarter: 2016Q3

REPORT INFORMATION
  Report Type: Report from Study
  Country: JP (occurrence: JP)
  Receive Date: 20160707
  Receipt Date: 20160707
  Transmission Date: 20161109
  Serious: Yes (Hospitalization)
  Sender: FDA-Public Use
  Company Number: JP-SA-2016SA122090

PATIENT
  Age: 68 Year
  Sex: Male
  Weight: 74 kg

DRUGS (8)
  1. ADALAT CC [Concomitant]
     Active Substance: NIFEDIPINE
  2. PLAVIX [Suspect]
     Active Substance: CLOPIDOGREL BISULFATE
     Indication: ARTERIOSCLEROSIS
     Route: 065
     Dates: start: 20120221, end: 20130628
  3. LOXONIN [Concomitant]
     Active Substance: LOXOPROFEN SODIUM
     Dates: start: 20120207, end: 20120209
  4. PLETAAL OD [Concomitant]
     Active Substance: CILOSTAZOL
     Dosage: ONGOING AFTER END OF POST-TREATMENTOBSERVATION PERIOD
     Dates: start: 20130709
  5. LOXONIN [Concomitant]
     Active Substance: LOXOPROFEN SODIUM
     Dates: start: 20120926, end: 20121002
  6. LIPITOR [Concomitant]
     Active Substance: ATORVASTATIN CALCIUM
  7. PLAVIX [Suspect]
     Active Substance: CLOPIDOGREL BISULFATE
     Indication: ARTERIOSCLEROSIS
     Dosage: START DATE: BEING USED FROM BEFORE THE DAY OF CONSENT
     Route: 065
     Dates: end: 20120220
  8. SALOBEL [Concomitant]
     Active Substance: ALLOPURINOL

REACTIONS (2)
  - Synovial cyst [Recovered/Resolved]
  - Haematuria [Recovered/Resolved]

NARRATIVE: CASE EVENT DATE: 20120924
